FAERS Safety Report 4292776-1 (Version None)
Quarter: 2004Q1

REPORT INFORMATION
  Report Type: 
  Country: None (occurrence: None)
  Receive Date: 20040210
  Receipt Date: 20040203
  Transmission Date: 20041129
  Serious: Yes (Other)
  Sender: FDA-Public Use
  Company Number: K200400143

PATIENT
  Age: 54 Year
  Sex: Male

DRUGS (2)
  1. ALTACE [Suspect]
     Indication: HYPERTENSION
     Dosage: 5MG, QD, ORAL
     Route: 048
     Dates: start: 20021001
  2. DECONGESTANTS AND ANTIALLERGICS () [Suspect]
     Indication: NASAL CONGESTION

REACTIONS (2)
  - DRUG INTERACTION [None]
  - TACHYCARDIA [None]
